FAERS Safety Report 14926389 (Version 2)
Quarter: 2020Q4

REPORT INFORMATION
  Report Type: Spontaneous
  Country: NL (occurrence: NL)
  Receive Date: 20180523
  Receipt Date: 20201112
  Transmission Date: 20210113
  Serious: Yes (Other)
  Sender: FDA-Public Use
  Company Number: NL-TEVA-2018-NL-894285

PATIENT
  Age: 19 Year
  Sex: Female
  Weight: 42 kg

DRUGS (2)
  1. NON SPECIFIED O.A.C. [Concomitant]
  2. LEVETIRACETAM TABLET FO 500MG / BRAND NAME NOT SPECIFIED [Suspect]
     Active Substance: LEVETIRACETAM
     Indication: EPILEPSY
     Dosage: 1500 MILLIGRAM DAILY;
     Dates: start: 201606, end: 2018

REACTIONS (1)
  - Renal impairment [Not Recovered/Not Resolved]

NARRATIVE: CASE EVENT DATE: 2017
